FAERS Safety Report 14874294 (Version 2)
Quarter: 2019Q1

REPORT INFORMATION
  Report Type: Report from Study
  Country: US (occurrence: US)
  Receive Date: 20180510
  Receipt Date: 20190211
  Transmission Date: 20190417
  Serious: Yes (Hospitalization, Other)
  Sender: FDA-Public Use
  Company Number: US-SA-2018SA122110

PATIENT
  Age: 50 Year
  Sex: Female

DRUGS (1)
  1. LEMTRADA [Suspect]
     Active Substance: ALEMTUZUMAB
     Indication: MULTIPLE SCLEROSIS
     Dosage: 12 MG,QD
     Route: 041
     Dates: start: 20180416, end: 20180420

REACTIONS (4)
  - Paranasal sinus discomfort [Not Recovered/Not Resolved]
  - Multiple sclerosis relapse [Unknown]
  - Pyrexia [Recovered/Resolved]
  - Migraine [Recovered/Resolved]
